FAERS Safety Report 9969621 (Version 1)
Quarter: 2014Q1

REPORT INFORMATION
  Report Type: Spontaneous
  Country: US (occurrence: None)
  Receive Date: 20140304
  Receipt Date: 20140304
  Transmission Date: 20141002
  Serious: Yes (Hospitalization, Disabling, Other)
  Sender: FDA-Public Use
  Company Number: None

PATIENT
  Age: 74 Year
  Sex: Female

DRUGS (21)
  1. BENICAR [Suspect]
     Indication: HYPERTENSION
     Dosage: 1 TABLET, QD, ORAL
     Route: 048
     Dates: start: 20090530, end: 20140226
  2. CLONIDINE [Concomitant]
  3. VITAMIN D3 [Concomitant]
  4. CALCIUM CITRATE [Concomitant]
  5. MIRTAZAPINE [Concomitant]
  6. OMEPRAZOLE [Concomitant]
  7. NITROSTAT [Concomitant]
  8. DOCUSATE [Concomitant]
  9. TRENTAL [Concomitant]
  10. IPRATROPIUM [Concomitant]
  11. PROAIR HFA [Concomitant]
  12. TRAMADOL [Concomitant]
  13. TYLENOL [Concomitant]
  14. SPIRIVA [Concomitant]
  15. PROMETHAZINE [Concomitant]
  16. MIRAPEX [Concomitant]
  17. FLORIGEN [Concomitant]
  18. LORTAB [Concomitant]
  19. LOMOTIL [Concomitant]
  20. ENTOCORT [Concomitant]
  21. ADVAIR [Concomitant]

REACTIONS (3)
  - Renal failure acute [None]
  - Dehydration [None]
  - Colitis microscopic [None]
